FAERS Safety Report 8246435-0 (Version None)
Quarter: 2012Q1

REPORT INFORMATION
  Report Type: 
  Country: None (occurrence: None)
  Receive Date: 20120330
  Receipt Date: 20120320
  Transmission Date: 20120608
  Serious: Yes (Other)
  Sender: FDA-Public Use
  Company Number: BR-JNJFOC-20120309532

PATIENT
  Age: 33 Year
  Sex: Female

DRUGS (2)
  1. TOPIRAMATE [Suspect]
     Dosage: 100 MG DAILY PER WEEK
     Route: 048
  2. TOPIRAMATE [Suspect]
     Indication: MIGRAINE PROPHYLAXIS
     Dosage: 25 MG DAILY FOR TWO WEEKS
     Route: 048

REACTIONS (1)
  - METAMORPHOPSIA [None]
